FAERS Safety Report 6720583-6 (Version None)
Quarter: 2010Q2

REPORT INFORMATION
  Report Type: 
  Country: None (occurrence: None)
  Receive Date: 20100510
  Receipt Date: 20100426
  Transmission Date: 20101027
  Serious: Yes (Other)
  Sender: FDA-Public Use
  Company Number: 2010SCPR000580

PATIENT
  Age: 50 Year
  Sex: Female

DRUGS (2)
  1. HYDROXYUREA [Suspect]
     Indication: ESSENTIAL THROMBOCYTHAEMIA
     Dosage: 500 MG, QD, ORAL
     Route: 048
     Dates: start: 20100121, end: 20100407
  2. LEVOTHYROXINE SODIUM [Concomitant]

REACTIONS (2)
  - DRUG INEFFECTIVE FOR UNAPPROVED INDICATION [None]
  - PLATELET COUNT INCREASED [None]
